FAERS Safety Report 4697516-X (Version None)
Quarter: 2005Q2

REPORT INFORMATION
  Report Type: 
  Country: None (occurrence: None)
  Receive Date: 20050621
  Receipt Date: 20050602
  Transmission Date: 20051028
  Serious: Yes (Death, Hospitalization)
  Sender: FDA-Public Use
  Company Number: USA050495116

PATIENT
  Age: 48 Year
  Sex: Male
  Weight: 71 kg

DRUGS (6)
  1. ALIMTA [Suspect]
     Indication: NON-SMALL CELL LUNG CANCER
     Dosage: 500 MG/M2
     Dates: start: 20050325, end: 20050325
  2. ETOPOSIDE [Concomitant]
  3. CISPLATIN [Concomitant]
  4. VITAMIN B-12 [Concomitant]
  5. FOLIC ACID [Concomitant]
  6. DEXAMETHASONE [Concomitant]

REACTIONS (3)
  - NEOPLASM RECURRENCE [None]
  - PNEUMONIA [None]
  - SQUAMOUS CELL CARCINOMA [None]
